FAERS Safety Report 9836543 (Version 1)
Quarter: 2014Q1

REPORT INFORMATION
  Report Type: Spontaneous
  Country: US (occurrence: US)
  Receive Date: 20140123
  Receipt Date: 20140123
  Transmission Date: 20141002
  Serious: Yes (Death)
  Sender: FDA-Public Use
  Company Number: US-PAR PHARMACEUTICAL, INC-2014SCPR008048

PATIENT
  Age: 50 Year
  Sex: Male

DRUGS (2)
  1. ZOLPIDEM TARTRATE ER [Suspect]
     Indication: PRODUCT USED FOR UNKNOWN INDICATION
     Dosage: UNK, UNKNOWN, INGST+INHAL+ASPIR
  2. RAPESEED OIL [Suspect]
     Indication: PRODUCT USED FOR UNKNOWN INDICATION
     Dosage: UNK, UNKNOWN, INGST+INHAL+ASPIR

REACTIONS (2)
  - Death [Fatal]
  - Drug administration error [Fatal]
